FAERS Safety Report 9642977 (Version 1)
Quarter: 2013Q4

REPORT INFORMATION
  Report Type: Spontaneous
  Country: US (occurrence: US)
  Receive Date: 20131024
  Receipt Date: 20131024
  Transmission Date: 20140711
  Serious: No
  Sender: FDA-Public Use
  Company Number: US-009507513-1307USA014803

PATIENT
  Sex: Male

DRUGS (3)
  1. DULERA [Suspect]
     Indication: BRONCHITIS
     Dosage: UNKNOWN, INHALE TWICE DAILY
     Route: 055
     Dates: start: 201207
  2. DULERA [Suspect]
     Indication: CHRONIC OBSTRUCTIVE PULMONARY DISEASE
  3. DULERA [Suspect]
     Indication: ASTHMA

REACTIONS (3)
  - Drug dose omission [Unknown]
  - Product container issue [Unknown]
  - No adverse event [Unknown]
